FAERS Safety Report 9119780 (Version 2)
Quarter: 2013Q1

REPORT INFORMATION
  Report Type: Spontaneous
  Country: CN (occurrence: CN)
  Receive Date: 20130226
  Receipt Date: 20130304
  Transmission Date: 20140127
  Serious: Yes (Hospitalization)
  Sender: FDA-Public Use
  Company Number: CN-SANOFI-AVENTIS-2013SA015459

PATIENT
  Age: 80 Year
  Sex: Male

DRUGS (3)
  1. LANTUS SOLOSTAR [Suspect]
     Indication: TYPE 2 DIABETES MELLITUS
     Route: 058
  2. SOLOSTAR [Suspect]
     Indication: DEVICE THERAPY
  3. GANSHULIN [Suspect]
     Indication: TYPE 2 DIABETES MELLITUS
     Route: 058
     Dates: start: 2005

REACTIONS (3)
  - Hypokalaemia [Recovered/Resolved]
  - Muscular weakness [Recovered/Resolved]
  - Muscular weakness [Recovered/Resolved]
